FAERS Safety Report 7637582-2 (Version None)
Quarter: 2011Q3

REPORT INFORMATION
  Report Type: 
  Country: None (occurrence: None)
  Receive Date: 20110726
  Receipt Date: 20110722
  Transmission Date: 20111222
  Serious: Yes (Hospitalization)
  Sender: FDA-Public Use
  Company Number: US-GILEAD-2011-0037676

PATIENT
  Sex: Female

DRUGS (2)
  1. ADCIRCA [Concomitant]
  2. LETAIRIS [Suspect]
     Indication: PULMONARY HYPERTENSION
     Route: 048
     Dates: start: 20101011

REACTIONS (3)
  - URINARY BLADDER HAEMORRHAGE [None]
  - SYSTEMIC LUPUS ERYTHEMATOSUS [None]
  - PNEUMONIA [None]
